FAERS Safety Report 5201369-0 (Version None)
Quarter: 2007Q1

REPORT INFORMATION
  Report Type: 
  Country: None (occurrence: None)
  Receive Date: 20070104
  Receipt Date: 20061218
  Transmission Date: 20070707
  Serious: Yes (Hospitalization)
  Sender: FDA-Public Use
  Company Number: POMP-10913

PATIENT
  Age: 11 Year
  Sex: Male
  Weight: 31.5 kg

DRUGS (1)
  1. MYOZYME [Suspect]
     Indication: GLYCOGEN STORAGE DISEASE TYPE II
     Dosage: 630 MG Q2WKS IV
     Route: 042
     Dates: start: 20060615

REACTIONS (2)
  - APPENDICITIS [None]
  - DEHYDRATION [None]
